FAERS Safety Report 8983270 (Version 1)
Quarter: 2012Q4

REPORT INFORMATION
  Report Type: 
  Country: GB (occurrence: GB)
  Receive Date: 20121224
  Receipt Date: 20121224
  Transmission Date: 20130627
  Serious: Yes (Hospitalization)
  Sender: FDA-Public Use
  Company Number: PHFR2012GB006439

PATIENT
  Age: 37 Year
  Sex: Male
  Weight: 74 kg

DRUGS (5)
  1. EXJADE [Suspect]
     Indication: CHELATION THERAPY
     Dosage: 1500 mg, UNK
     Route: 048
     Dates: start: 201203, end: 201203
  2. COLECALCIFEROL [Concomitant]
  3. NEBIDO [Concomitant]
  4. THYROXINE [Concomitant]
  5. ZINC [Concomitant]

REACTIONS (4)
  - Syncope [Unknown]
  - Haemorrhagic erosive gastritis [Recovered/Resolved with Sequelae]
  - Gastric ulcer [Recovered/Resolved with Sequelae]
  - Abdominal pain upper [Unknown]
